FAERS Safety Report 18203190 (Version 1)
Quarter: 2020Q3

REPORT INFORMATION
  Report Type: Spontaneous
  Country: US (occurrence: US)
  Receive Date: 20200827
  Receipt Date: 20200827
  Transmission Date: 20201103
  Serious: Yes (Hospitalization, Other)
  Sender: FDA-Public Use
  Company Number: US-SA-2020SA224236

PATIENT

DRUGS (2)
  1. LANTUS SOLOSTAR [Suspect]
     Active Substance: INSULIN GLARGINE
     Dosage: 50 IU, QD
     Route: 065
  2. LANTUS SOLOSTAR [Suspect]
     Active Substance: INSULIN GLARGINE
     Dosage: 40 UNITS TO STRETCH HER SUPPLY OF LANTUS
     Route: 065

REACTIONS (6)
  - Drug ineffective [Unknown]
  - Pulmonary oedema [Unknown]
  - Intentional product use issue [Unknown]
  - Nephropathy [Unknown]
  - Blood glucose abnormal [Unknown]
  - Product availability issue [Unknown]
